FAERS Safety Report 8823817 (Version 3)
Quarter: 2012Q4

REPORT INFORMATION
  Report Type: 
  Country: US (occurrence: US)
  Receive Date: 20121003
  Receipt Date: 20121108
  Transmission Date: 20130627
  Serious: No
  Sender: FDA-Public Use
  Company Number: US-PFIZER INC-2012243181

PATIENT
  Sex: Male

DRUGS (1)
  1. TOVIAZ [Suspect]
     Dosage: 8 mg, UNK
     Dates: start: 2012

REACTIONS (3)
  - Dysgeusia [Unknown]
  - Dry mouth [Unknown]
  - Dry throat [Unknown]
